FAERS Safety Report 16130625 (Version 1)
Quarter: 2019Q1

REPORT INFORMATION
  Report Type: Spontaneous
  Country: US (occurrence: US)
  Receive Date: 20190328
  Receipt Date: 20190328
  Transmission Date: 20190418
  Serious: No
  Sender: FDA-Public Use
  Company Number: US-TEVA-2019-US-1030539

PATIENT
  Age: 20 Year

DRUGS (2)
  1. CLARAVIS [Suspect]
     Active Substance: ISOTRETINOIN
     Dosage: APPROXIMATELY 1 MG/KG
  2. CLARAVIS [Suspect]
     Active Substance: ISOTRETINOIN
     Dosage: APPROXIMATELY 1 MG/KG
     Dates: end: 20190206

REACTIONS (4)
  - Tachycardia [Recovered/Resolved]
  - Visual field defect [Recovering/Resolving]
  - Chest pain [Recovered/Resolved]
  - Visual acuity reduced [Recovering/Resolving]

NARRATIVE: CASE EVENT DATE: 20190206
